FAERS Safety Report 6355475-8 (Version None)
Quarter: 2009Q3

REPORT INFORMATION
  Report Type: 
  Country: None (occurrence: None)
  Receive Date: 20090914
  Receipt Date: 20090908
  Transmission Date: 20100115
  Serious: Yes (Death, Hospitalization, Other)
  Sender: FDA-Public Use
  Company Number: US-CELGENEUS-163-20785-09090609

PATIENT
  Sex: Female

DRUGS (18)
  1. THALOMID [Suspect]
     Indication: MULTIPLE MYELOMA
     Route: 048
     Dates: start: 20090605
  2. THALOMID [Suspect]
     Route: 048
     Dates: start: 20090611, end: 20090619
  3. KEPPRA [Concomitant]
     Route: 065
  4. MIRALAX [Concomitant]
     Indication: CONSTIPATION
     Route: 048
     Dates: start: 20090101
  5. NORFLEX [Concomitant]
     Route: 048
     Dates: start: 20090101
  6. DECADRON [Concomitant]
     Indication: DRUG USE FOR UNKNOWN INDICATION
     Route: 051
  7. DECADRON [Concomitant]
     Route: 048
  8. ACYCLOVIR [Concomitant]
     Indication: DRUG USE FOR UNKNOWN INDICATION
     Route: 051
     Dates: start: 20090601
  9. ULTRAM [Concomitant]
     Indication: DRUG USE FOR UNKNOWN INDICATION
     Route: 065
     Dates: end: 20090617
  10. POTASSIUM CHLORIDE [Concomitant]
     Indication: DRUG USE FOR UNKNOWN INDICATION
     Route: 065
     Dates: start: 20090601
  11. PRIMAXIN [Concomitant]
     Indication: DRUG USE FOR UNKNOWN INDICATION
     Route: 065
  12. VELCADE [Concomitant]
     Indication: DRUG USE FOR UNKNOWN INDICATION
     Route: 051
     Dates: start: 20090701
  13. LOMOTIL [Concomitant]
     Indication: DRUG USE FOR UNKNOWN INDICATION
     Route: 065
  14. ZOFRAN [Concomitant]
     Indication: DRUG USE FOR UNKNOWN INDICATION
     Route: 065
  15. FLAGYL [Concomitant]
     Indication: DRUG USE FOR UNKNOWN INDICATION
     Route: 065
  16. ZANTAC [Concomitant]
     Indication: DRUG USE FOR UNKNOWN INDICATION
     Route: 065
  17. DILAUDID [Concomitant]
     Indication: PAIN
     Dates: start: 20090701
  18. ATIVAN [Concomitant]
     Indication: PAIN
     Dates: start: 20090701

REACTIONS (14)
  - ASPERGILLOSIS [None]
  - ASTHENIA [None]
  - COLON GANGRENE [None]
  - CONVULSION [None]
  - DEATH [None]
  - DIARRHOEA [None]
  - LARYNGITIS [None]
  - MALNUTRITION [None]
  - METHICILLIN-RESISTANT STAPHYLOCOCCAL AUREUS TEST [None]
  - PANCYTOPENIA [None]
  - PYREXIA [None]
  - RESPIRATORY FAILURE [None]
  - SKIN LESION [None]
  - VASCULITIS [None]
